FAERS Safety Report 12473009 (Version 1)
Quarter: 2016Q2

REPORT INFORMATION
  Report Type: Spontaneous
  Country: US (occurrence: US)
  Receive Date: 20160616
  Receipt Date: 20160616
  Transmission Date: 20160815
  Serious: No
  Sender: FDA-Public Use
  Company Number: US-BAYER-2016-117166

PATIENT
  Age: 80 Year
  Sex: Male
  Weight: 68.27 kg

DRUGS (8)
  1. ASPIRINE [Concomitant]
     Active Substance: ASPIRIN
     Dosage: UNK
  2. PLAVIX [Concomitant]
     Active Substance: CLOPIDOGREL BISULFATE
     Dosage: UNK
  3. LATANOPROST. [Concomitant]
     Active Substance: LATANOPROST
     Dosage: UNK
  4. METOPROLOL. [Concomitant]
     Active Substance: METOPROLOL
     Dosage: UNK
  5. ALEVE PM [Suspect]
     Active Substance: DIPHENHYDRAMINE HYDROCHLORIDE\NAPROXEN SODIUM
     Dosage: 1 DF, QD
     Route: 048
     Dates: start: 201604
  6. CRESTOR [Concomitant]
     Active Substance: ROSUVASTATIN CALCIUM
     Dosage: UNK
  7. RAMIPRIL A [Concomitant]
     Active Substance: RAMIPRIL
     Dosage: UNK
  8. AZOPT [Concomitant]
     Active Substance: BRINZOLAMIDE
     Dosage: UNK

REACTIONS (2)
  - Product use issue [None]
  - Product use issue [None]

NARRATIVE: CASE EVENT DATE: 201604
